FAERS Safety Report 6278623-7 (Version None)
Quarter: 2009Q3

REPORT INFORMATION
  Report Type: 
  Country: None (occurrence: None)
  Receive Date: 20090722
  Receipt Date: 20090409
  Transmission Date: 20100115
  Serious: No
  Sender: FDA-Public Use
  Company Number: US-BAUSCH-2009BL001588

PATIENT
  Age: 57 Year
  Sex: Female
  Weight: 108 kg

DRUGS (6)
  1. OPCON-A [Suspect]
     Indication: EYE PRURITUS
     Route: 047
     Dates: start: 20090408, end: 20090408
  2. LANOXIN [Concomitant]
     Indication: ARRHYTHMIA
     Route: 048
     Dates: start: 20030101
  3. LEVOTHYROXINE SODIUM [Concomitant]
     Indication: THYROID DISORDER
     Route: 048
     Dates: start: 20070101
  4. CARTIA XT [Concomitant]
     Indication: ARRHYTHMIA
     Route: 048
     Dates: start: 20040101
  5. ASPIRIN [Concomitant]
     Route: 048
     Dates: start: 20030101
  6. LOPERAMIDE HYDROCHLORIDE [Concomitant]
     Indication: IRRITABLE BOWEL SYNDROME
     Route: 048
     Dates: start: 20070101

REACTIONS (1)
  - MYDRIASIS [None]
